FAERS Safety Report 4596440-0 (Version None)
Quarter: 2005Q1

REPORT INFORMATION
  Report Type: 
  Country: None (occurrence: None)
  Receive Date: 20050228
  Receipt Date: 20050218
  Transmission Date: 20050727
  Serious: Yes (Death)
  Sender: FDA-Public Use
  Company Number: 163-20785-05010488

PATIENT
  Age: 75 Year
  Sex: Female

DRUGS (2)
  1. THALOMID [Suspect]
     Indication: MYELODYSPLASTIC SYNDROME
     Dosage: 100 MG, DAILY, ORAL
     Route: 048
     Dates: start: 20040301, end: 20041201
  2. DESFERAL (DEFEROXAMINE MESILATE) [Concomitant]

REACTIONS (5)
  - DISEASE PROGRESSION [None]
  - MUCORMYCOSIS [None]
  - MYELODYSPLASTIC SYNDROME [None]
  - PNEUMONIA [None]
  - SEPSIS [None]
